FAERS Safety Report 7999357-4 (Version None)
Quarter: 2011Q4

REPORT INFORMATION
  Report Type: 
  Country: None (occurrence: None)
  Receive Date: 20111221
  Receipt Date: 20080818
  Transmission Date: 20120403
  Serious: Yes (Other)
  Sender: FDA-Public Use
  Company Number: PHHY2008IE043846

PATIENT
  Sex: Male

DRUGS (1)
  1. CLOZARIL [Suspect]
     Dates: end: 20080814

REACTIONS (3)
  - HYPOTENSION [None]
  - PYREXIA [None]
  - CHEST DISCOMFORT [None]
